FAERS Safety Report 9611237 (Version 1)
Quarter: 2013Q4

REPORT INFORMATION
  Report Type: Spontaneous
  Country: US (occurrence: US)
  Receive Date: 20131010
  Receipt Date: 20131010
  Transmission Date: 20140711
  Serious: No
  Sender: FDA-Public Use
  Company Number: US-009507513-1310USA003319

PATIENT
  Sex: Female

DRUGS (1)
  1. INTERFERON ALFA-2B [Suspect]
     Indication: MALIGNANT MELANOMA
     Dosage: UNK, Q5D
     Route: 030
     Dates: start: 201207, end: 201212

REACTIONS (1)
  - Dizziness [Recovered/Resolved]
